FAERS Safety Report 5042012-3 (Version None)
Quarter: 2006Q2

REPORT INFORMATION
  Report Type: 
  Country: None (occurrence: None)
  Receive Date: 20060627
  Receipt Date: 20060612
  Transmission Date: 20061013
  Serious: Yes (Hospitalization, Other)
  Sender: FDA-Public Use
  Company Number: US-2006-005420

PATIENT
  Age: 60 Year
  Sex: Male
  Weight: 90.7 kg

DRUGS (10)
  1. BETASERON [Suspect]
     Indication: RELAPSING-REMITTING MULTIPLE SCLEROSIS
     Dosage: 8 MIU, EVERY 2D, SUBCUTANEOUS
     Route: 058
     Dates: start: 19940915
  2. BACLOFEN [Concomitant]
  3. PREVACID [Concomitant]
  4. COLCHICINE [Concomitant]
  5. NORVASC [Concomitant]
  6. PROMETHAZINE [Concomitant]
  7. VALIUM [Concomitant]
  8. AMANTADINE HCL [Concomitant]
  9. ZANAFLEX [Concomitant]
  10. VYTORIN [Concomitant]

REACTIONS (8)
  - ABDOMINAL PAIN UPPER [None]
  - DECREASED APPETITE [None]
  - DIABETES MELLITUS INSULIN-DEPENDENT [None]
  - FATIGUE [None]
  - GASTRIC DISORDER [None]
  - IMPAIRED GASTRIC EMPTYING [None]
  - PNEUMONIA ASPIRATION [None]
  - WEIGHT DECREASED [None]
